FAERS Safety Report 10013113 (Version 1)
Quarter: 2014Q1

REPORT INFORMATION
  Report Type: Spontaneous
  Country: US (occurrence: US)
  Receive Date: 20140314
  Receipt Date: 20140314
  Transmission Date: 20141002
  Serious: No
  Sender: FDA-Public Use
  Company Number: US-ASTRAZENECA-2013SE90800

PATIENT
  Age: 52 Year
  Sex: Female
  Weight: 68 kg

DRUGS (5)
  1. ZOMIG ZMT [Suspect]
     Indication: MIGRAINE
     Route: 048
     Dates: start: 2011, end: 201310
  2. ZOMIG ZMT [Suspect]
     Indication: MIGRAINE
     Route: 048
     Dates: start: 201310
  3. MULTIVITAMIN [Concomitant]
     Indication: SUPPLEMENTATION THERAPY
     Dosage: 1 TABLET DAILY
     Route: 048
  4. CALCIUM WITH MAGNESIUM [Concomitant]
     Indication: SUPPLEMENTATION THERAPY
     Route: 048
  5. VITAMIN D [Concomitant]
     Indication: SUPPLEMENTATION THERAPY
     Route: 048

REACTIONS (8)
  - Thirst [Unknown]
  - Middle insomnia [Unknown]
  - Adverse event [Unknown]
  - Paraesthesia [Unknown]
  - Pollakiuria [Unknown]
  - Burning sensation [Unknown]
  - Paraesthesia [Unknown]
  - Intentional drug misuse [Unknown]
